FAERS Safety Report 16904847 (Version 3)
Quarter: 2020Q2

REPORT INFORMATION
  Report Type: Report from Study
  Country: JP (occurrence: JP)
  Receive Date: 20191010
  Receipt Date: 20200612
  Transmission Date: 20200713
  Serious: Yes (Death, Other)
  Sender: FDA-Public Use
  Company Number: JP-ASTRAZENECA-2019SE93654

PATIENT
  Age: 51 Year
  Sex: Female
  Weight: 40 kg

DRUGS (5)
  1. LYNPARZA [Suspect]
     Active Substance: OLAPARIB
     Indication: BREAST CANCER
     Route: 048
     Dates: start: 20190527, end: 20190620
  2. LYNPARZA [Suspect]
     Active Substance: OLAPARIB
     Indication: BREAST CANCER
     Route: 048
     Dates: start: 20190621
  3. LYNPARZA [Suspect]
     Active Substance: OLAPARIB
     Indication: BREAST CANCER
     Route: 048
     Dates: end: 20190830
  4. OXYCODONE [Suspect]
     Active Substance: OXYCODONE
     Indication: PAIN MANAGEMENT
     Dosage: DOSE UNKNOWN
     Route: 048
     Dates: start: 20190528
  5. NOVAMIN (AMIKACIN SULFATE) [Suspect]
     Active Substance: AMIKACIN SULFATE
     Dosage: DOSE UNKNOWN
     Route: 065

REACTIONS (7)
  - Anaemia [Recovering/Resolving]
  - Nausea [Unknown]
  - Tumour haemorrhage [Unknown]
  - Malignant neoplasm progression [Fatal]
  - Product dose omission [Unknown]
  - Akathisia [Unknown]
  - Nausea [Recovered/Resolved]

NARRATIVE: CASE EVENT DATE: 2019
